FAERS Safety Report 14569083 (Version 1)
Quarter: 2018Q1

REPORT INFORMATION
  Report Type: Spontaneous
  Country: US (occurrence: US)
  Receive Date: 20180223
  Receipt Date: 20180223
  Transmission Date: 20180509
  Serious: Yes (Other)
  Sender: FDA-Public Use
  Company Number: None

PATIENT
  Age: 32 Year
  Sex: Female
  Weight: 83.25 kg

DRUGS (5)
  1. REXALL SINUS NASAL PUMP MIST [Suspect]
     Active Substance: OXYMETAZOLINE HYDROCHLORIDE
     Indication: PULMONARY CONGESTION
     Dosage: ?          QUANTITY:2 SPRAY(S);?
     Route: 045
     Dates: start: 20180223
  2. TOPICAL MAGNESIUM SPRAY [Concomitant]
  3. FOLIC ACID. [Concomitant]
     Active Substance: FOLIC ACID
  4. LAMOTRIGINE. [Concomitant]
     Active Substance: LAMOTRIGINE
  5. PRENATAL VITAMINS [Concomitant]
     Active Substance: VITAMINS

REACTIONS (4)
  - Eye irritation [None]
  - Throat irritation [None]
  - Ear discomfort [None]
  - Myalgia [None]

NARRATIVE: CASE EVENT DATE: 20180223
